FAERS Safety Report 16252192 (Version 1)
Quarter: 2019Q2

REPORT INFORMATION
  Report Type: Spontaneous
  Country: US (occurrence: US)
  Receive Date: 20190429
  Receipt Date: 20190429
  Transmission Date: 20190711
  Serious: Yes (Other)
  Sender: FDA-Public Use
  Company Number: US-MYLANLABS-2019M1039682

PATIENT
  Age: 26 Year
  Sex: Female

DRUGS (3)
  1. LITHIUM MYLAN [Suspect]
     Active Substance: LITHIUM
     Indication: PRODUCT USED FOR UNKNOWN INDICATION
     Dosage: UNK
     Dates: end: 2019
  2. PRENATAL                           /06041401/ [Concomitant]
     Dosage: UNK
     Dates: start: 20190311
  3. LATUDA [Suspect]
     Active Substance: LURASIDONE HYDROCHLORIDE
     Indication: BIPOLAR DISORDER
     Dosage: 20 MILLIGRAM
     Route: 048
     Dates: start: 201903

REACTIONS (2)
  - High risk pregnancy [Unknown]
  - Maternal exposure during pregnancy [Unknown]
